FAERS Safety Report 7690790-7 (Version None)
Quarter: 2011Q3

REPORT INFORMATION
  Report Type: 
  Country: None (occurrence: None)
  Receive Date: 20110816
  Receipt Date: 20110816
  Transmission Date: 20111222
  Serious: Yes (Other)
  Sender: FDA-Public Use
  Company Number: None

PATIENT
  Sex: Female

DRUGS (4)
  1. SYNTHROID [Concomitant]
  2. ADDERALL XR 10 [Concomitant]
  3. LISINOPRIL [Concomitant]
  4. AMPHETAMINE AND DEXTROAMPHETAMINE SALTS [Suspect]
     Dosage: ONE 2-3X DAILY PO
     Route: 048
     Dates: start: 20110811, end: 20110812

REACTIONS (1)
  - DRUG INEFFECTIVE [None]
